FAERS Safety Report 20137065 (Version 1)
Quarter: 2021Q4

REPORT INFORMATION
  Report Type: Spontaneous
  Country: US (occurrence: US)
  Receive Date: 20211201
  Receipt Date: 20211201
  Transmission Date: 20220303
  Serious: No
  Sender: FDA-Public Use
  Company Number: US-MYLANLABS-2021M1087509

PATIENT
  Age: 59 Year
  Sex: Female
  Weight: 57.15 kg

DRUGS (1)
  1. ESTRADIOL TRANSDERMAL SYSTEM [Suspect]
     Active Substance: ESTRADIOL
     Indication: Menopause
     Dosage: 0.037 MILLIGRAM, QD
     Route: 062
     Dates: start: 202110

REACTIONS (3)
  - Product adhesion issue [Unknown]
  - Product packaging quantity issue [Unknown]
  - Wrong technique in product usage process [Unknown]

NARRATIVE: CASE EVENT DATE: 20211117
